FAERS Safety Report 10957840 (Version 1)
Quarter: 2015Q1

REPORT INFORMATION
  Report Type: Report from Study
  Country: US (occurrence: US)
  Receive Date: 20150326
  Receipt Date: 20150326
  Transmission Date: 20150721
  Serious: Yes (Other)
  Sender: FDA-Public Use
  Company Number: PHEH2015US005032

PATIENT
  Sex: Female

DRUGS (1)
  1. ILARIS [Suspect]
     Active Substance: CANAKINUMAB
     Indication: PRODUCT USED FOR UNKNOWN INDICATION
     Dosage: FETAL DRUG EXPOSURE VIA FATHER
     Route: 050

REACTIONS (3)
  - Acquired gene mutation [Unknown]
  - Muckle-Wells syndrome [Unknown]
  - Exposure via father [Unknown]
